FAERS Safety Report 12860493 (Version 4)
Quarter: 2017Q2

REPORT INFORMATION
  Report Type: Spontaneous
  Country: TW (occurrence: TW)
  Receive Date: 20161019
  Receipt Date: 20170516
  Transmission Date: 20170830
  Serious: Yes (Death, Hospitalization, Other)
  Sender: FDA-Public Use
  Company Number: TW-ACTELION-A-CH2016-143750

PATIENT
  Age: 62 Year
  Sex: Male

DRUGS (4)
  1. VERAPAMIL [Concomitant]
     Active Substance: VERAPAMIL HYDROCHLORIDE
     Indication: PULMONARY ARTERIAL HYPERTENSION
     Dosage: 120 MG, BID
     Route: 048
     Dates: start: 201410, end: 20170508
  2. COLCHICINE. [Concomitant]
     Active Substance: COLCHICINE
     Dosage: 0.5 MG, QD
     Route: 048
     Dates: start: 201603, end: 20170508
  3. WARFARIN [Concomitant]
     Active Substance: WARFARIN
     Indication: PULMONARY ARTERIAL HYPERTENSION
     Dosage: 5 MG, QD
     Route: 048
     Dates: start: 201410, end: 20170508
  4. TRACLEER [Suspect]
     Active Substance: BOSENTAN
     Indication: PULMONARY ARTERIAL HYPERTENSION
     Dosage: 125 MG, BID
     Route: 048
     Dates: start: 20140909, end: 20170508

REACTIONS (11)
  - Urinary tract infection [Unknown]
  - Haematuria [Unknown]
  - Urine analysis abnormal [Unknown]
  - Palpitations [Unknown]
  - Hydronephrosis [Fatal]
  - Muscle twitching [Unknown]
  - Haemorrhage urinary tract [Unknown]
  - Dyspnoea [Unknown]
  - Sinus tachycardia [Unknown]
  - Prostate cancer stage IV [Fatal]
  - Pyrexia [Unknown]

NARRATIVE: CASE EVENT DATE: 20161010
